FAERS Safety Report 9970213 (Version 1)
Quarter: 2014Q1

REPORT INFORMATION
  Report Type: Spontaneous
  Country: US (occurrence: US)
  Receive Date: 20140306
  Receipt Date: 20140306
  Transmission Date: 20141002
  Serious: No
  Sender: FDA-Public Use
  Company Number: US-009507513-1403USA000295

PATIENT
  Age: 62 Year
  Sex: Female
  Weight: 95.2 kg

DRUGS (3)
  1. DULERA [Suspect]
     Dosage: UNK
     Route: 055
     Dates: start: 20140221
  2. CHOLECALCIFEROL [Concomitant]
     Dosage: 2000 MG A DAY
  3. CYANOCOBALAMIN [Concomitant]
     Dosage: 1000 MG A DAY

REACTIONS (3)
  - Chest pain [Unknown]
  - Back pain [Unknown]
  - Breast pain [Unknown]
